FAERS Safety Report 4343906-4 (Version None)
Quarter: 2004Q2

REPORT INFORMATION
  Report Type: 
  Country: None (occurrence: None)
  Receive Date: 20040419
  Receipt Date: 20040405
  Transmission Date: 20050107
  Serious: Yes (Other)
  Sender: FDA-Public Use
  Company Number: 200411077GDS

PATIENT
  Age: 54 Year
  Sex: Male

DRUGS (2)
  1. AVELOX [Suspect]
     Indication: LOBAR PNEUMONIA
     Dosage: 400 MG, TOTAL DAILY, ORAL
     Route: 048
     Dates: start: 20040322
  2. SYMBICORT [Concomitant]

REACTIONS (3)
  - BRONCHIAL CARCINOMA [None]
  - PARANEOPLASTIC SYNDROME [None]
  - THROMBOSIS [None]
